FAERS Safety Report 19239609 (Version 1)
Quarter: 2021Q2

REPORT INFORMATION
  Report Type: Spontaneous
  Country: US (occurrence: US)
  Receive Date: 20210510
  Receipt Date: 20210510
  Transmission Date: 20210717
  Serious: No
  Sender: FDA-Public Use
  Company Number: US-PFIZER INC-2019336683

PATIENT
  Age: 82 Year
  Sex: Male
  Weight: 83.9 kg

DRUGS (4)
  1. XALKORI [Suspect]
     Active Substance: CRIZOTINIB
     Indication: BLADDER CANCER
  2. XALKORI [Suspect]
     Active Substance: CRIZOTINIB
     Indication: HEPATIC CANCER
  3. XALKORI [Suspect]
     Active Substance: CRIZOTINIB
     Indication: INTRAOCULAR MELANOMA
  4. XALKORI [Suspect]
     Active Substance: CRIZOTINIB
     Indication: LUNG NEOPLASM MALIGNANT
     Dosage: 200 MG, 2X/DAY
     Route: 048
     Dates: start: 201906

REACTIONS (3)
  - Neoplasm progression [Unknown]
  - Oropharyngeal discomfort [Unknown]
  - Dysphonia [Unknown]
